FAERS Safety Report 5004148-2 (Version None)
Quarter: 2006Q2

REPORT INFORMATION
  Report Type: 
  Country: None (occurrence: None)
  Receive Date: 20060517
  Receipt Date: 20060505
  Transmission Date: 20061013
  Serious: Yes (Death, Other)
  Sender: FDA-Public Use
  Company Number: US-AMGEN-US178614

PATIENT
  Sex: Male

DRUGS (1)
  1. EPOGEN [Suspect]
     Indication: DIALYSIS
     Route: 042
     Dates: start: 20040101

REACTIONS (3)
  - APLASIA PURE RED CELL [None]
  - INTESTINAL ISCHAEMIA [None]
  - THERAPEUTIC RESPONSE DECREASED [None]
